FAERS Safety Report 11399137 (Version 2)
Quarter: 2015Q3

REPORT INFORMATION
  Report Type: Spontaneous
  Country: JP (occurrence: JP)
  Receive Date: 20150820
  Receipt Date: 20150916
  Transmission Date: 20151125
  Serious: Yes (Hospitalization)
  Sender: FDA-Public Use
  Company Number: JP-BIOGENIDEC-2015BI096348

PATIENT
  Age: 27 Year
  Sex: Female

DRUGS (9)
  1. MAXALT [Concomitant]
     Active Substance: RIZATRIPTAN BENZOATE
     Dates: start: 20140820, end: 20140918
  2. DEPAKENE [Concomitant]
     Active Substance: VALPROIC ACID
     Dates: start: 20140820, end: 20140918
  3. TAKEPRON [Concomitant]
     Active Substance: LANSOPRAZOLE
     Dates: start: 20140820, end: 20140918
  4. AVONEX [Suspect]
     Active Substance: INTERFERON BETA-1A
     Indication: MULTIPLE SCLEROSIS
     Route: 030
     Dates: start: 20121220, end: 20150613
  5. DUPHASTON [Concomitant]
     Active Substance: DYDROGESTERONE
     Dates: start: 201306
  6. LOXOPROFEN [Concomitant]
     Active Substance: LOXOPROFEN
     Dates: start: 201303
  7. DUPHASTON [Concomitant]
     Active Substance: DYDROGESTERONE
     Dates: start: 20140820, end: 20140918
  8. KEPPRA [Concomitant]
     Active Substance: LEVETIRACETAM
     Dates: start: 20140820, end: 20140918
  9. TIZANIDINE. [Concomitant]
     Active Substance: TIZANIDINE
     Dates: start: 20140820, end: 20140918

REACTIONS (1)
  - Complex regional pain syndrome [Recovered/Resolved]

NARRATIVE: CASE EVENT DATE: 20150608
